FAERS Safety Report 20979193 (Version 1)
Quarter: 2022Q2

REPORT INFORMATION
  Report Type: Spontaneous
  Country: US (occurrence: None)
  Receive Date: 20220620
  Receipt Date: 20220620
  Transmission Date: 20220720
  Serious: No
  Sender: FDA-Public Use
  Company Number: 2022A197845

PATIENT
  Sex: Female
  Weight: 54.4 kg

DRUGS (4)
  1. CRESTOR [Suspect]
     Active Substance: ROSUVASTATIN CALCIUM
     Indication: Blood cholesterol increased
     Route: 048
  2. LIPITOR [Concomitant]
     Active Substance: ATORVASTATIN CALCIUM
     Indication: Blood cholesterol
  3. URSO FORTE [Concomitant]
     Active Substance: URSODIOL
     Indication: Primary biliary cholangitis
     Dates: start: 2000
  4. METOPROLOL [Concomitant]
     Active Substance: METOPROLOL
     Indication: Hypertension

REACTIONS (5)
  - Hypertension [Unknown]
  - Migraine [Unknown]
  - Palpitations [Unknown]
  - Eye disorder [Unknown]
  - Headache [Unknown]
